FAERS Safety Report 4283438-5 (Version None)
Quarter: 2004Q1

REPORT INFORMATION
  Report Type: 
  Country: None (occurrence: None)
  Receive Date: 20040121
  Receipt Date: 20031007
  Transmission Date: 20041129
  Serious: Yes (Other)
  Sender: FDA-Public Use
  Company Number: A03200302371

PATIENT
  Age: 59 Year
  Sex: Male

DRUGS (9)
  1. PLAVIX [Suspect]
     Indication: SURGERY
     Dosage: 75 MG QD - ORAL
     Route: 048
     Dates: start: 20030101, end: 20030101
  2. CHLORTALIDONE [Concomitant]
  3. LISINOPRIL [Concomitant]
  4. ATENOLOL [Concomitant]
  5. GEMFIBROZIL [Concomitant]
  6. KETOCONAZOLE [Concomitant]
  7. MULTI-VITAMINS [Concomitant]
  8. MAGNESIUM [Concomitant]
  9. GARLIC [Concomitant]

REACTIONS (1)
  - SWELLING FACE [None]
